FAERS Safety Report 5482741-0 (Version None)
Quarter: 2007Q4

REPORT INFORMATION
  Report Type: 
  Country: None (occurrence: None)
  Receive Date: 20071011
  Receipt Date: 20070928
  Transmission Date: 20080405
  Serious: Yes (Other)
  Sender: FDA-Public Use
  Company Number: BE-PFIZER INC-2007083367

PATIENT
  Sex: Female
  Weight: 48 kg

DRUGS (6)
  1. LYRICA [Suspect]
     Indication: POLYNEUROPATHY
  2. LYRICA [Suspect]
     Dosage: FREQ:FREQUENCY: BID
  3. NOVORAPID [Concomitant]
     Route: 058
  4. LANTUS [Concomitant]
     Route: 058
  5. IRON PREPARATIONS [Concomitant]
     Route: 048
  6. OMNIBIONTA [Concomitant]
     Route: 048

REACTIONS (1)
  - CAESAREAN SECTION [None]
